FAERS Safety Report 5024400-4 (Version None)
Quarter: 2006Q2

REPORT INFORMATION
  Report Type: 
  Country: None (occurrence: None)
  Receive Date: 20060613
  Receipt Date: 20060413
  Transmission Date: 20061013
  Serious: Yes (Hospitalization, Other)
  Sender: FDA-Public Use
  Company Number: PHFR2006GB01482

PATIENT
  Age: 69 Year
  Sex: Female

DRUGS (5)
  1. CLOZARIL [Suspect]
     Indication: SCHIZOPHRENIA
     Dosage: UNK, UNK
     Route: 048
     Dates: start: 20051111
  2. CLOZARIL [Suspect]
     Dosage: 400 MG/DAY
     Route: 048
     Dates: start: 20060329
  3. LEVOTHYROXINE SODIUM [Concomitant]
     Indication: HYPOTHYROIDISM
     Dosage: 100 UG/DAY
     Route: 048
  4. FENOFIBRATE [Concomitant]
     Dosage: 67 UG, BID
     Route: 048
  5. CITALOPRAM HYDROBROMIDE [Concomitant]
     Indication: DEPRESSION
     Dosage: 30 MG/DAY

REACTIONS (3)
  - ELECTROCARDIOGRAM ABNORMAL [None]
  - HYPOREFLEXIA [None]
  - LOWER RESPIRATORY TRACT INFECTION [None]
